FAERS Safety Report 7370353-3 (Version None)
Quarter: 2011Q1

REPORT INFORMATION
  Report Type: 
  Country: None (occurrence: None)
  Receive Date: 20110323
  Receipt Date: 20110315
  Transmission Date: 20110831
  Serious: Yes (Hospitalization)
  Sender: FDA-Public Use
  Company Number: US-SANOFI-AVENTIS-2011SA016735

PATIENT
  Age: 75 Year
  Sex: Female

DRUGS (7)
  1. PLAVIX [Suspect]
     Indication: CAROTID ARTERY OCCLUSION
     Route: 048
     Dates: start: 20010101
  2. PLAVIX [Interacting]
     Route: 048
     Dates: start: 20110315
  3. NORVASC [Concomitant]
  4. PLAVIX [Interacting]
     Route: 048
     Dates: start: 20030101, end: 20030101
  5. TOPROL-XL [Concomitant]
  6. HUMULIN N [Concomitant]
  7. PLAVIX [Interacting]
     Route: 048
     Dates: start: 20030101, end: 20110311

REACTIONS (9)
  - SPEECH DISORDER [None]
  - CONVULSION [None]
  - URINARY TRACT INFECTION [None]
  - CONTUSION [None]
  - DRUG INTERACTION [None]
  - VAGINAL HAEMORRHAGE [None]
  - CHROMATURIA [None]
  - HAEMORRHAGE [None]
  - CEREBROVASCULAR ACCIDENT [None]
